FAERS Safety Report 8200704-9 (Version None)
Quarter: 2012Q1

REPORT INFORMATION
  Report Type: 
  Country: None (occurrence: None)
  Receive Date: 20120312
  Receipt Date: 20120305
  Transmission Date: 20120608
  Serious: Yes (Life-Threatening, Hospitalization, Other)
  Sender: FDA-Public Use
  Company Number: JP-ASTELLAS-2012US002505

PATIENT
  Age: 60 Year
  Sex: Male
  Weight: 67 kg

DRUGS (19)
  1. FRESMIN S [Concomitant]
     Indication: FOLATE DEFICIENCY
     Dosage: UNK
     Route: 065
     Dates: start: 20120131, end: 20120205
  2. DEPAS [Concomitant]
     Indication: INSOMNIA
  3. MINOCYCLINE HCL [Concomitant]
     Indication: DERMATITIS ACNEIFORM
     Dosage: UNK
     Route: 065
     Dates: start: 20120113, end: 20120123
  4. AZUNOL [Concomitant]
     Indication: DERMATITIS ACNEIFORM
     Dosage: UNK
     Route: 065
     Dates: start: 20120110, end: 20120204
  5. CALBLOCK [Concomitant]
     Indication: HYPERTENSION
     Dosage: UNK
     Route: 065
     Dates: start: 20040101, end: 20120123
  6. URINORM [Concomitant]
     Indication: HYPERURICAEMIA
     Dosage: UNK
     Route: 065
     Dates: start: 20040101, end: 20120123
  7. LIPITOR [Concomitant]
     Indication: HYPERLIPIDAEMIA
     Dosage: UNK
     Route: 065
     Dates: start: 20040101, end: 20120123
  8. CANDESARTAN CILEXETIL [Concomitant]
     Indication: HYPERTENSION
     Dosage: UNK
     Route: 065
     Dates: start: 20040101, end: 20120123
  9. KERATINAMIN [Concomitant]
     Indication: DERMATITIS ACNEIFORM
     Dosage: UNK
     Route: 065
     Dates: start: 20120110, end: 20120204
  10. DEPAS [Concomitant]
     Indication: ANXIETY
     Dosage: UNK
     Route: 065
     Dates: start: 20120131, end: 20120205
  11. PANVITAN [Concomitant]
     Indication: BLOOD FOLATE DECREASED
     Dosage: UNK
     Route: 048
     Dates: start: 20120131, end: 20120205
  12. LOPERAMIDE HCL [Concomitant]
     Indication: DIARRHOEA
     Dosage: UNK
     Route: 065
     Dates: start: 20120119, end: 20120121
  13. RESTAMIN KOWA [Concomitant]
     Indication: DERMATITIS ACNEIFORM
     Dosage: UNK
     Route: 065
     Dates: start: 20120110, end: 20120204
  14. PLACEBO [Suspect]
     Indication: NON-SMALL CELL LUNG CANCER
     Dosage: UID/QD
     Route: 048
     Dates: start: 20120105, end: 20120119
  15. ERLOTINIB HYDROCHLORIDE [Suspect]
     Indication: NON-SMALL CELL LUNG CANCER
     Dosage: UID/QD
     Route: 048
     Dates: start: 20120105, end: 20120119
  16. GLYCYRON [Concomitant]
     Indication: ASPARTATE AMINOTRANSFERASE INCREASED
  17. YUEKIN KEEP [Concomitant]
     Indication: DEHYDRATION
     Dosage: UNK
     Route: 065
     Dates: start: 20120123, end: 20120127
  18. GLYCYRON [Concomitant]
     Indication: ALANINE AMINOTRANSFERASE INCREASED
     Dosage: 6 DF, UID/QD
     Dates: start: 20120131, end: 20120205
  19. LOXONIN [Concomitant]
     Indication: TUMOUR ASSOCIATED FEVER
     Dosage: UNK
     Route: 065
     Dates: start: 20120129, end: 20120130

REACTIONS (10)
  - ACUTE RESPIRATORY FAILURE [None]
  - CARDIOMEGALY [None]
  - DEHYDRATION [None]
  - LYMPHANGIOSIS CARCINOMATOSA [None]
  - NEOPLASM MALIGNANT [None]
  - CARDIAC FAILURE [None]
  - PULMONARY OEDEMA [None]
  - RENAL FAILURE [None]
  - LIVER FUNCTION TEST ABNORMAL [None]
  - PULMONARY EMBOLISM [None]
